FAERS Safety Report 7496401-8 (Version None)
Quarter: 2011Q2

REPORT INFORMATION
  Report Type: 
  Country: None (occurrence: None)
  Receive Date: 20110513
  Receipt Date: 20080508
  Transmission Date: 20111010
  Serious: Yes (Death)
  Sender: FDA-Public Use
  Company Number: 1-16017802

PATIENT
  Age: 62 Year
  Sex: Female

DRUGS (10)
  1. FENTANYL-75 [Suspect]
     Indication: CHEST PAIN
     Dosage: TRANSDERMAL
     Route: 062
     Dates: start: 20080229, end: 20080303
  2. VYTORIN [Concomitant]
  3. PLAVIX [Concomitant]
  4. TRICOR [Concomitant]
  5. FENTANYL-75 [Suspect]
  6. LORTAB [Concomitant]
  7. ATENOLOL [Concomitant]
  8. PREMARIN [Concomitant]
  9. LISINOPRIL [Concomitant]
  10. TOPAMAX [Concomitant]

REACTIONS (4)
  - RESPIRATORY RATE DECREASED [None]
  - SOMNOLENCE [None]
  - SUDDEN DEATH [None]
  - SNORING [None]
